FAERS Safety Report 20994220 (Version 1)
Quarter: 2022Q2

REPORT INFORMATION
  Report Type: Report from Study
  Country: FR (occurrence: FR)
  Receive Date: 20220622
  Receipt Date: 20220622
  Transmission Date: 20220721
  Serious: Yes (Other)
  Sender: FDA-Public Use
  Company Number: FR-GILEAD-2022-0584732

PATIENT
  Age: 55 Year
  Sex: Male

DRUGS (3)
  1. EMTRICITABINE\TENOFOVIR DISOPROXIL [Suspect]
     Active Substance: EMTRICITABINE\TENOFOVIR DISOPROXIL
     Indication: HIV-2 infection
     Dosage: UNK
     Dates: start: 20200723
  2. PREZISTA [Concomitant]
     Active Substance: DARUNAVIR ETHANOLATE
     Indication: HIV-2 infection
     Dosage: UNK
     Dates: start: 20200723
  3. NORVIR [Concomitant]
     Active Substance: RITONAVIR
     Indication: HIV-2 infection
     Dosage: UNK
     Dates: start: 20200723

REACTIONS (4)
  - Blood HIV RNA increased [Unknown]
  - Drug ineffective [Unknown]
  - Genotype drug resistance test positive [Unknown]
  - Off label use [Unknown]

NARRATIVE: CASE EVENT DATE: 20200723
